FAERS Safety Report 24768683 (Version 2)
Quarter: 2025Q1

REPORT INFORMATION
  Report Type: Spontaneous
  Country: US (occurrence: US)
  Receive Date: 20241224
  Receipt Date: 20250103
  Transmission Date: 20250409
  Serious: Yes (Other)
  Sender: TEVA
  Company Number: US-TEVA-VS-3277235

PATIENT
  Age: 68 Year
  Sex: Male

DRUGS (3)
  1. TRIAMCINOLONE [Suspect]
     Active Substance: TRIAMCINOLONE
     Indication: Cough
     Dosage: SUPERIOR LARYNGEAL NERVE INJECTION CONSISTED OF 1:1 MIXTURE OF 1ML OF TRIAMCINOLONE 200MG/5ML AND...
     Route: 050
  2. PREDNISONE [Concomitant]
     Active Substance: PREDNISONE
     Indication: Product used for unknown indication
     Route: 048
  3. BECLOMETHASONE [Concomitant]
     Active Substance: BECLOMETHASONE
     Indication: Product used for unknown indication
     Route: 045

REACTIONS (1)
  - Secondary adrenocortical insufficiency [Recovering/Resolving]
